FAERS Safety Report 7151179-2 (Version None)
Quarter: 2010Q4

REPORT INFORMATION
  Report Type: 
  Country: None (occurrence: None)
  Receive Date: 20101124
  Receipt Date: 20101109
  Transmission Date: 20110411
  Serious: Yes (Hospitalization)
  Sender: FDA-Public Use
  Company Number: C-10-0264-W

PATIENT

DRUGS (1)
  1. CEFTRIAXONE [Suspect]

REACTIONS (5)
  - CHEST PAIN [None]
  - HYPOTENSION [None]
  - PRURITUS [None]
  - SWELLING [None]
  - VOMITING [None]
